FAERS Safety Report 17749531 (Version 4)
Quarter: 2020Q2

REPORT INFORMATION
  Report Type: Report from Study
  Country: None (occurrence: ES)
  Receive Date: 20200506
  Receipt Date: 20200601
  Transmission Date: 20200714
  Serious: Yes (Other)
  Sender: FDA-Public Use
  Company Number: ES-ABBVIE-20K-144-3390709-00

PATIENT
  Age: 75 Year
  Sex: Male
  Weight: 80 kg

DRUGS (1)
  1. DUODOPA [Suspect]
     Active Substance: CARBIDOPA\LEVODOPA
     Indication: PARKINSON^S DISEASE
     Route: 050
     Dates: start: 20191107

REACTIONS (3)
  - Diverticulitis [Recovering/Resolving]
  - Pain in extremity [Unknown]
  - Freezing phenomenon [Unknown]

NARRATIVE: CASE EVENT DATE: 2020
